FAERS Safety Report 8822277 (Version 2)
Quarter: 2012Q4

REPORT INFORMATION
  Report Type: 
  Country: JP (occurrence: JP)
  Receive Date: 20121003
  Receipt Date: 20121018
  Transmission Date: 20130627
  Serious: Yes (Other)
  Sender: FDA-Public Use
  Company Number: PHHY2012JP081502

PATIENT
  Age: 68 Year
  Sex: Male

DRUGS (5)
  1. TASIGNA [Suspect]
     Indication: CHRONIC MYELOID LEUKAEMIA
     Dosage: 400 mg, daily
     Route: 048
     Dates: start: 20120515
  2. GASTER [Concomitant]
     Route: 048
  3. LOXONIN [Concomitant]
     Route: 048
  4. MUCOSTA [Concomitant]
     Route: 048
  5. HYDREA [Concomitant]
     Indication: CHRONIC MYELOID LEUKAEMIA
     Dosage: 500 mg, TID

REACTIONS (1)
  - Detachment of retinal pigment epithelium [Not Recovered/Not Resolved]
